FAERS Safety Report 4269686-9 (Version None)
Quarter: 2004Q1

REPORT INFORMATION
  Report Type: 
  Country: None (occurrence: None)
  Receive Date: 20040112
  Receipt Date: 20031230
  Transmission Date: 20041129
  Serious: Yes (Death, Life-Threatening, Hospitalization)
  Sender: FDA-Public Use
  Company Number: CAPT20030031

PATIENT
  Age: 44 Year
  Sex: Female

DRUGS (3)
  1. CAPTOPRIL [Suspect]
     Dosage: PO
     Route: 048
     Dates: start: 20020101, end: 20020101
  2. DILTIAZEM [Suspect]
     Dosage: PO
     Route: 048
     Dates: start: 20020101, end: 20020101
  3. ETHANOL [Suspect]
     Dosage: PO
     Route: 048
     Dates: start: 20020101, end: 20020101

REACTIONS (4)
  - BRAIN DEATH [None]
  - CARDIAC ARREST [None]
  - COMPLETED SUICIDE [None]
  - DRUG LEVEL INCREASED [None]
